FAERS Safety Report 8452407-3 (Version None)
Quarter: 2012Q2

REPORT INFORMATION
  Report Type: 
  Country: None (occurrence: None)
  Receive Date: 20120620
  Receipt Date: 20120615
  Transmission Date: 20120825
  Serious: No
  Sender: FDA-Public Use
  Company Number: US-PFIZER INC-2012144973

PATIENT
  Sex: Male
  Weight: 117 kg

DRUGS (1)
  1. IBUPROFEN (ADVIL) [Suspect]
     Indication: HEADACHE
     Dosage: UNK, AS NEEDED
     Dates: start: 20120610

REACTIONS (2)
  - HEADACHE [None]
  - PAIN [None]
